FAERS Safety Report 25300361 (Version 1)
Quarter: 2025Q2

REPORT INFORMATION
  Report Type: Spontaneous
  Country: CN (occurrence: CN)
  Receive Date: 20250512
  Receipt Date: 20250512
  Transmission Date: 20250716
  Serious: Yes (Hospitalization, Other)
  Sender: BEIGENE
  Company Number: CN-BEIGENE-BGN-2025-007315

PATIENT
  Age: 52 Year
  Weight: 70 kg

DRUGS (7)
  1. TISLELIZUMAB [Suspect]
     Active Substance: TISLELIZUMAB
     Indication: Nasopharyngeal cancer
  2. TISLELIZUMAB [Suspect]
     Active Substance: TISLELIZUMAB
     Route: 041
  3. TISLELIZUMAB [Suspect]
     Active Substance: TISLELIZUMAB
     Route: 041
  4. TISLELIZUMAB [Suspect]
     Active Substance: TISLELIZUMAB
  5. PACLITAXEL [Suspect]
     Active Substance: PACLITAXEL
     Indication: Nasopharyngeal cancer
     Route: 041
  6. PACLITAXEL [Suspect]
     Active Substance: PACLITAXEL
  7. NEDAPLATIN [Concomitant]
     Active Substance: NEDAPLATIN
     Indication: Nasopharyngeal cancer

REACTIONS (4)
  - Myelosuppression [Recovering/Resolving]
  - Acute kidney injury [Recovering/Resolving]
  - Hyperpyrexia [Recovering/Resolving]
  - Chills [Recovering/Resolving]
